FAERS Safety Report 16957217 (Version 2)
Quarter: 2019Q4

REPORT INFORMATION
  Report Type: Spontaneous
  Country: GB (occurrence: GB)
  Receive Date: 20191024
  Receipt Date: 20191219
  Transmission Date: 20200122
  Serious: Yes (Death, Hospitalization, Other)
  Sender: FDA-Public Use
  Company Number: GB-PFIZER INC-2019455588

PATIENT
  Age: 54 Year
  Sex: Female
  Weight: 99 kg

DRUGS (6)
  1. LETROZOLE. [Concomitant]
     Active Substance: LETROZOLE
     Dosage: 1 MG, UNK
     Dates: start: 20181005, end: 201911
  2. RAMIPRIL. [Concomitant]
     Active Substance: RAMIPRIL
     Dosage: 1.25 MG, UNK
  3. IBRANCE [Suspect]
     Active Substance: PALBOCICLIB
     Dosage: 125 MG, CYCLIC (DAILY, DAY 1 TO 21 OUT OF 28 DAYS)
     Route: 048
     Dates: start: 20181005, end: 201901
  4. RIVAROXABAN [Concomitant]
     Active Substance: RIVAROXABAN
     Dosage: 20 MG, UNK
  5. ZOPICLONE [Concomitant]
     Active Substance: ZOPICLONE
     Dosage: 3.75 MG, UNK
  6. AMITRIPTYLLINE [Concomitant]
     Active Substance: AMITRIPTYLINE
     Dosage: 50 MG, UNK

REACTIONS (3)
  - Hepatic cirrhosis [Fatal]
  - Ascites [Fatal]
  - Neutropenic sepsis [Unknown]

NARRATIVE: CASE EVENT DATE: 201812
